FAERS Safety Report 16124945 (Version 1)
Quarter: 2019Q1

REPORT INFORMATION
  Report Type: Spontaneous
  Country: CN (occurrence: CN)
  Receive Date: 20190327
  Receipt Date: 20190327
  Transmission Date: 20190418
  Serious: Yes (Hospitalization)
  Sender: FDA-Public Use
  Company Number: CN-ELI_LILLY_AND_COMPANY-CN201903010530

PATIENT
  Sex: Male

DRUGS (4)
  1. HUMALOG MIX75/25 [Suspect]
     Active Substance: INSULIN LISPRO
     Dosage: 8 9 UNITS IN THE EVENING
     Route: 058
     Dates: start: 2014
  2. HUMALOG MIX75/25 [Suspect]
     Active Substance: INSULIN LISPRO
     Indication: DIABETES MELLITUS
     Dosage: 17 18 UNITS IN THE MORNING
     Route: 058
     Dates: start: 2014
  3. HUMALOG MIX75/25 [Suspect]
     Active Substance: INSULIN LISPRO
     Dosage: 22 [IU], EACH MORNING
     Route: 058
     Dates: start: 201804, end: 20190316
  4. HUMALOG MIX75/25 [Suspect]
     Active Substance: INSULIN LISPRO
     Dosage: 12 [IU], EACH EVENING
     Route: 058
     Dates: start: 201804, end: 20190316

REACTIONS (2)
  - Diabetes mellitus [Unknown]
  - Product dose omission [Unknown]

NARRATIVE: CASE EVENT DATE: 201804
